FAERS Safety Report 5674064-1 (Version None)
Quarter: 2008Q1

REPORT INFORMATION
  Report Type: 
  Country: None (occurrence: None)
  Receive Date: 20080317
  Receipt Date: 20080229
  Transmission Date: 20080703
  Serious: Yes (Hospitalization)
  Sender: FDA-Public Use
  Company Number: 8030458

PATIENT
  Age: 35 Hour
  Sex: Male

DRUGS (5)
  1. KEPPRA [Suspect]
  2. TEMODAL [Concomitant]
  3. OPTIMATE SEPTIMUM [Concomitant]
  4. CALCICHEW-D3 [Concomitant]
  5. BETAPRED [Concomitant]

REACTIONS (2)
  - LEUKOCYTOSIS [None]
  - PANCYTOPENIA [None]
